FAERS Safety Report 6336768-7 (Version None)
Quarter: 2009Q3

REPORT INFORMATION
  Report Type: 
  Country: None (occurrence: None)
  Receive Date: 20090828
  Receipt Date: 20090828
  Transmission Date: 20100115
  Serious: Yes (Hospitalization)
  Sender: FDA-Public Use
  Company Number: None

PATIENT
  Sex: Male
  Weight: 74.3899 kg

DRUGS (3)
  1. AVASTIN [Suspect]
     Indication: GLIOBLASTOMA MULTIFORME
     Dosage: 760 MG/2WKS, IV
     Route: 042
     Dates: start: 20090527, end: 20090708
  2. TEMODAR [Suspect]
     Indication: GLIOBLASTOMA MULTIFORME
     Dosage: 145 MG/PO/DAY DURING RT
     Dates: start: 20090527, end: 20090708
  3. TYLENOL (CAPLET) [Concomitant]

REACTIONS (6)
  - AGITATION [None]
  - ANAEMIA [None]
  - RENAL FAILURE ACUTE [None]
  - THROMBOCYTOPENIA [None]
  - THROMBOTIC THROMBOCYTOPENIC PURPURA [None]
  - UNRESPONSIVE TO STIMULI [None]
